FAERS Safety Report 6239205-6 (Version None)
Quarter: 2009Q2

REPORT INFORMATION
  Report Type: 
  Country: None (occurrence: None)
  Receive Date: 20090622
  Receipt Date: 20090619
  Transmission Date: 20091009
  Serious: Yes (Hospitalization)
  Sender: FDA-Public Use
  Company Number: FR-BRISTOL-MYERS SQUIBB COMPANY-13983101

PATIENT
  Age: 27 Year
  Sex: Female
  Weight: 55 kg

DRUGS (3)
  1. SUSTIVA [Suspect]
     Indication: HIV INFECTION
     Route: 048
     Dates: start: 20070530
  2. TRUVADA [Suspect]
     Indication: HIV INFECTION
     Route: 048
     Dates: start: 20070530
  3. RIFINAH [Suspect]
     Indication: TUBERCULOSIS
     Dosage: 1DF=2TAB/D
     Dates: start: 20070704

REACTIONS (5)
  - EYE INFECTION TOXOPLASMAL [None]
  - IMMUNE RECONSTITUTION SYNDROME [None]
  - LYMPH NODE ABSCESS [None]
  - LYMPHADENOPATHY [None]
  - RETINAL SCAR [None]
